FAERS Safety Report 5427895-7 (Version None)
Quarter: 2007Q3

REPORT INFORMATION
  Report Type: 
  Country: None (occurrence: None)
  Receive Date: 20070828
  Receipt Date: 20070821
  Transmission Date: 20080115
  Serious: Yes (Other)
  Sender: FDA-Public Use
  Company Number: US-PFIZER INC-2007061031

PATIENT
  Sex: Female
  Weight: 79.545 kg

DRUGS (5)
  1. LYRICA [Suspect]
     Indication: PAIN
     Dosage: FREQ:DAILY EVERY DAY
     Dates: start: 20070714, end: 20070719
  2. ACTOS [Concomitant]
  3. MECLIZINE [Concomitant]
  4. ANTIHYPERTENSIVES [Concomitant]
  5. ANTIHYPERTENSIVES [Concomitant]

REACTIONS (4)
  - ERYTHEMA [None]
  - EYE SWELLING [None]
  - OCULAR DISCOMFORT [None]
  - RASH [None]
